FAERS Safety Report 6096448-2 (Version None)
Quarter: 2009Q1

REPORT INFORMATION
  Report Type: 
  Country: None (occurrence: None)
  Receive Date: 20090227
  Receipt Date: 20090116
  Transmission Date: 20090719
  Serious: No
  Sender: FDA-Public Use
  Company Number: A0761683A

PATIENT
  Age: 54 Year
  Sex: Female

DRUGS (3)
  1. LAMICTAL [Suspect]
     Indication: BIPOLAR DISORDER
     Route: 048
     Dates: start: 20080501, end: 20090114
  2. SEROQUEL [Concomitant]
  3. NEXIUM [Concomitant]

REACTIONS (4)
  - MOUTH ULCERATION [None]
  - RASH [None]
  - RASH PRURITIC [None]
  - SWELLING [None]
